FAERS Safety Report 9437073 (Version 1)
Quarter: 2013Q3

REPORT INFORMATION
  Report Type: Spontaneous
  Country: JP (occurrence: JP)
  Receive Date: 20130802
  Receipt Date: 20130802
  Transmission Date: 20140515
  Serious: Yes (Other)
  Sender: FDA-Public Use
  Company Number: JP-ASTELLAS-2013JP008023

PATIENT
  Age: 17 Year
  Sex: Female

DRUGS (8)
  1. PROGRAF [Suspect]
     Indication: RHEUMATOID FACTOR POSITIVE
     Route: 065
  2. PROGRAF [Suspect]
     Indication: JUVENILE IDIOPATHIC ARTHRITIS
  3. CICLOSPORIN [Concomitant]
     Indication: RHEUMATOID FACTOR
     Route: 065
  4. CICLOSPORIN [Concomitant]
     Indication: JUVENILE IDIOPATHIC ARTHRITIS
  5. METHOTREXATE [Concomitant]
     Indication: RHEUMATOID FACTOR
     Route: 048
  6. METHOTREXATE [Concomitant]
     Indication: JUVENILE IDIOPATHIC ARTHRITIS
     Dosage: UNK
     Route: 048
  7. HUMIRA [Concomitant]
     Indication: RHEUMATOID FACTOR
     Route: 065
  8. HUMIRA [Concomitant]
     Indication: JUVENILE IDIOPATHIC ARTHRITIS

REACTIONS (4)
  - Drug ineffective for unapproved indication [Unknown]
  - Exposure during pregnancy [Unknown]
  - Juvenile idiopathic arthritis [Unknown]
  - Rheumatoid factor positive [Unknown]
